FAERS Safety Report 6357275-1 (Version None)
Quarter: 2009Q3

REPORT INFORMATION
  Report Type: 
  Country: None (occurrence: None)
  Receive Date: 20090916
  Receipt Date: 20090904
  Transmission Date: 20100115
  Serious: Yes (Other)
  Sender: FDA-Public Use
  Company Number: PHEH2009US10663

PATIENT
  Sex: Male

DRUGS (6)
  1. DIOVAN [Suspect]
     Dosage: 160 MG, UNK
  2. LEVOTHYROXINE SODIUM [Concomitant]
  3. LOVASTATIN [Concomitant]
     Dosage: 20 MG
  4. METOPROLOL TARTRATE [Concomitant]
     Dosage: 50 MG
  5. LISINOPRIL AND HYDROCHLOROTHIAZIDE [Concomitant]
     Dosage: 20/L2.5 MG
  6. BETHANECHOL [Concomitant]
     Dosage: 25 MG

REACTIONS (2)
  - BLADDER CANCER [None]
  - NEPHRECTOMY [None]
